FAERS Safety Report 7515904-0 (Version None)
Quarter: 2011Q2

REPORT INFORMATION
  Report Type: 
  Country: None (occurrence: None)
  Receive Date: 20110601
  Receipt Date: 20110526
  Transmission Date: 20111010
  Serious: No
  Sender: FDA-Public Use
  Company Number: US-PFIZER INC-2011115520

PATIENT
  Sex: Female
  Weight: 49.887 kg

DRUGS (2)
  1. PREMARIN [Concomitant]
     Indication: HYSTERECTOMY
     Dosage: UNK, DAILY
  2. DETROL LA [Suspect]
     Indication: POLLAKIURIA
     Dosage: 4 MG, DAILY
     Route: 048

REACTIONS (1)
  - DRUG INEFFECTIVE [None]
